FAERS Safety Report 9782106 (Version 1)
Quarter: 2013Q4

REPORT INFORMATION
  Report Type: Spontaneous
  Country: DE (occurrence: DE)
  Receive Date: 20131226
  Receipt Date: 20131226
  Transmission Date: 20140711
  Serious: Yes (Other)
  Sender: FDA-Public Use
  Company Number: DE-ROCHE-1324665

PATIENT
  Age: 17 Year
  Sex: 0

DRUGS (4)
  1. RITUXIMAB [Suspect]
     Indication: NEPHROTIC SYNDROME
     Dosage: 2 DOSAGES GIVEN
     Route: 065
     Dates: start: 201111
  2. MYCOPHENOLATE MOFETIL [Suspect]
     Indication: NEPHROTIC SYNDROME
     Route: 065
  3. CYCLOSPORINE A [Suspect]
     Indication: NEPHROTIC SYNDROME
     Route: 065
  4. AZATHIOPRINE [Concomitant]

REACTIONS (2)
  - Inflammatory bowel disease [Recovered/Resolved]
  - Colitis [Recovered/Resolved]
